FAERS Safety Report 9404577 (Version 1)
Quarter: 2013Q3

REPORT INFORMATION
  Report Type: Spontaneous
  Country: US (occurrence: None)
  Receive Date: 20130715
  Receipt Date: 20130715
  Transmission Date: 20140515
  Serious: Yes (Other)
  Sender: FDA-Public Use
  Company Number: US-012240

PATIENT
  Age: 66 Year
  Sex: Male
  Weight: 83.46 kg

DRUGS (11)
  1. DEGARELIX [Suspect]
     Indication: PROSTATE CANCER
     Dosage: 240 MG TOTAL?
     Dates: start: 201203
  2. METOPROLOL [Concomitant]
  3. GABAPENTIN [Concomitant]
  4. BUPROPION [Concomitant]
  5. AMLODIPINE [Concomitant]
  6. BICALUTAMIDE [Concomitant]
  7. CLOPIDOGREL [Concomitant]
  8. SIMVASTATIN [Concomitant]
  9. ASPIRIN [Concomitant]
  10. PERCOCET / 00867901/ [Concomitant]
  11. B 12 [Concomitant]

REACTIONS (2)
  - Convulsion [None]
  - Chills [None]
